FAERS Safety Report 24253231 (Version 1)
Quarter: 2024Q3

REPORT INFORMATION
  Report Type: Spontaneous
  Country: FR (occurrence: FR)
  Receive Date: 20240827
  Receipt Date: 20240827
  Transmission Date: 20241017
  Serious: Yes (Hospitalization)
  Sender: ACCORD
  Company Number: None

PATIENT
  Age: 66 Year
  Sex: Male
  Weight: 77 kg

DRUGS (14)
  1. IRINOTECAN [Suspect]
     Active Substance: IRINOTECAN
     Indication: Pancreatic carcinoma metastatic
     Dosage: DOSAGE NOT PROVIDED
     Dates: end: 20231219
  2. FLUOROURACIL [Suspect]
     Active Substance: FLUOROURACIL
     Indication: Pancreatic carcinoma metastatic
     Dosage: DOSAGE NOT PROVIDED
     Dates: end: 20231219
  3. ESOMEPRAZOLE [Concomitant]
     Active Substance: ESOMEPRAZOLE
  4. CHOLECALCIFEROL [Concomitant]
     Active Substance: CHOLECALCIFEROL
  5. CREON [Concomitant]
     Active Substance: PANCRELIPASE AMYLASE\PANCRELIPASE LIPASE\PANCRELIPASE PROTEASE
  6. NOVORAPID [Concomitant]
     Active Substance: INSULIN ASPART
  7. CALCIUM CARBONATE\CHOLECALCIFEROL [Concomitant]
     Active Substance: CALCIUM CARBONATE\CHOLECALCIFEROL
  8. NEBIVOLOL [Concomitant]
     Active Substance: NEBIVOLOL
  9. AMIODARONE [Concomitant]
     Active Substance: AMIODARONE
  10. RACECADOTRIL [Concomitant]
     Active Substance: RACECADOTRIL
  11. ELIQUIS [Concomitant]
     Active Substance: APIXABAN
  12. METFORMIN [Concomitant]
     Active Substance: METFORMIN HYDROCHLORIDE
  13. LANTUS [Concomitant]
     Active Substance: INSULIN GLARGINE
  14. LOPERAMIDE HYDROCHLORIDE [Concomitant]
     Active Substance: LOPERAMIDE HYDROCHLORIDE

REACTIONS (2)
  - Febrile bone marrow aplasia [Recovered/Resolved]
  - Diarrhoea [Recovered/Resolved]

NARRATIVE: CASE EVENT DATE: 20231201
